FAERS Safety Report 7458445-1 (Version None)
Quarter: 2011Q2

REPORT INFORMATION
  Report Type: 
  Country: None (occurrence: None)
  Receive Date: 20110504
  Receipt Date: 20110426
  Transmission Date: 20111010
  Serious: Yes (Life-Threatening)
  Sender: FDA-Public Use
  Company Number: B0716041A

PATIENT
  Sex: Female
  Weight: 51 kg

DRUGS (5)
  1. CYMERIN [Suspect]
     Indication: STEM CELL TRANSPLANT
     Dosage: 350MG PER DAY
     Route: 042
     Dates: start: 20081103, end: 20081103
  2. PARAPLATIN [Suspect]
     Indication: STEM CELL TRANSPLANT
     Dosage: 420MG PER DAY
     Route: 065
     Dates: start: 20081104, end: 20081107
  3. CYMERIN [Suspect]
     Dosage: 350MG PER DAY
     Route: 042
     Dates: start: 20081108, end: 20081108
  4. VEPESID [Suspect]
     Indication: STEM CELL TRANSPLANT
     Dosage: 700MG PER DAY
     Route: 042
     Dates: start: 20081105, end: 20081107
  5. ALKERAN [Suspect]
     Indication: STEM CELL TRANSPLANT
     Dosage: 200MG PER DAY
     Route: 042
     Dates: start: 20081109, end: 20081109

REACTIONS (1)
  - RENAL FAILURE [None]
